FAERS Safety Report 8247032-3 (Version None)
Quarter: 2012Q1

REPORT INFORMATION
  Report Type: 
  Country: None (occurrence: None)
  Receive Date: 20120330
  Receipt Date: 20120330
  Transmission Date: 20120608
  Serious: No
  Sender: FDA-Public Use
  Company Number: None

PATIENT
  Age: 65 Year
  Sex: Male
  Weight: 108.86 kg

DRUGS (1)
  1. SIMVASTATIN [Suspect]
     Indication: MYOCARDIAL INFARCTION
     Dosage: 40MG
     Route: 048
     Dates: start: 20100610, end: 20110827

REACTIONS (3)
  - MYALGIA [None]
  - INCONTINENCE [None]
  - PAIN IN EXTREMITY [None]
